FAERS Safety Report 10498227 (Version 1)
Quarter: 2014Q4

REPORT INFORMATION
  Report Type: Spontaneous
  Country: US (occurrence: None)
  Receive Date: 20141003
  Receipt Date: 20141003
  Transmission Date: 20150528
  Serious: Yes (Disabling)
  Sender: FDA-Public Use
  Company Number: None

PATIENT
  Age: 68 Year
  Sex: Female
  Weight: 100.6 kg

DRUGS (1)
  1. VANCOMYCIN [Suspect]
     Active Substance: VANCOMYCIN
     Indication: PROPHYLAXIS
     Dosage: X1 INTRACEMURAL

REACTIONS (4)
  - Retinal disorder [None]
  - Periphlebitis [None]
  - Flushing [None]
  - Vitreous floaters [None]

NARRATIVE: CASE EVENT DATE: 20140807
